FAERS Safety Report 10085653 (Version 1)
Quarter: 2014Q2

REPORT INFORMATION
  Report Type: Spontaneous
  Country: US (occurrence: None)
  Receive Date: 20140416
  Receipt Date: 20140416
  Transmission Date: 20141212
  Serious: Yes (Hospitalization)
  Sender: FDA-Public Use
  Company Number: AUR-APL-2014-04619

PATIENT
  Age: 11 Year
  Sex: Male

DRUGS (2)
  1. RISPERIDONE [Suspect]
     Indication: PSYCHOTIC DISORDER
     Dosage: 4 MG (2 MG, 2 IN 1 D) , UNKNOWN
  2. OXYCARBAZEPINE [Suspect]
     Indication: PSYCHOTIC DISORDER
     Dosage: 1200 MG (600 MG, 2 IN 1 D), UNKNOWN  - THERAPY DATES - STOPPED

REACTIONS (8)
  - Aggression [None]
  - Conduct disorder [None]
  - Dysarthria [None]
  - Feeling abnormal [None]
  - Tongue movement disturbance [None]
  - Dystonia [None]
  - Drug level increased [None]
  - Drug interaction [None]
